FAERS Safety Report 21961344 (Version 1)
Quarter: 2023Q1

REPORT INFORMATION
  Report Type: Spontaneous
  Country: CN (occurrence: CN)
  Receive Date: 20230207
  Receipt Date: 20230207
  Transmission Date: 20230418
  Serious: Yes (Death, Life-Threatening, Other)
  Sender: FDA-Public Use
  Company Number: CN-AMGEN-CHNSP2023019157

PATIENT

DRUGS (7)
  1. FILGRASTIM [Suspect]
     Active Substance: FILGRASTIM
     Indication: Prophylaxis
     Dosage: 300 MICROGRAM
     Route: 065
  2. TUCIDINOSTAT [Concomitant]
     Active Substance: TUCIDINOSTAT
     Indication: Acute myeloid leukaemia
     Dosage: 30 MILLIGRAM
  3. TUCIDINOSTAT [Concomitant]
     Active Substance: TUCIDINOSTAT
     Indication: Myelodysplastic syndrome
  4. CYTARABINE [Concomitant]
     Active Substance: CYTARABINE
     Indication: Acute myeloid leukaemia
     Dosage: 10 MILLIGRAM/SQ. METER
  5. CYTARABINE [Concomitant]
     Active Substance: CYTARABINE
     Indication: Myelodysplastic syndrome
  6. ACLARUBICIN [Concomitant]
     Active Substance: ACLARUBICIN
     Indication: Myelodysplastic syndrome
     Dosage: 20 MILLIGRAM (ON DAYS 1, 3, AND 5)
  7. ACLARUBICIN [Concomitant]
     Active Substance: ACLARUBICIN
     Indication: Acute myeloid leukaemia

REACTIONS (30)
  - Acute myeloid leukaemia recurrent [Fatal]
  - Myelodysplastic syndrome [Fatal]
  - Acute graft versus host disease [Unknown]
  - Neutropenia [Unknown]
  - Thrombocytopenia [Unknown]
  - Leukopenia [Unknown]
  - Anaemia [Unknown]
  - Febrile neutropenia [Unknown]
  - Cough [Recovered/Resolved]
  - Stomatitis [Recovered/Resolved]
  - Aspartate aminotransferase increased [Recovered/Resolved]
  - Alanine aminotransferase increased [Recovered/Resolved]
  - Blood alkaline phosphatase increased [Recovered/Resolved]
  - Gamma-glutamyltransferase increased [Recovered/Resolved]
  - Blood bilirubin increased [Recovered/Resolved]
  - Pneumonitis [Unknown]
  - Graft versus host disease in eye [Unknown]
  - Graft versus host disease in skin [Unknown]
  - Graft versus host disease in lung [Unknown]
  - Hypokalaemia [Recovered/Resolved]
  - Hypoalbuminaemia [Recovered/Resolved]
  - Hyperglycaemia [Recovered/Resolved]
  - Hypocalcaemia [Recovered/Resolved]
  - Blood creatinine increased [Recovered/Resolved]
  - Therapeutic product effect incomplete [Unknown]
  - Therapy non-responder [Unknown]
  - Nausea [Recovered/Resolved]
  - Vomiting [Recovered/Resolved]
  - Diarrhoea [Recovered/Resolved]
  - Decreased appetite [Recovered/Resolved]
